FAERS Safety Report 8192651-6 (Version None)
Quarter: 2012Q1

REPORT INFORMATION
  Report Type: 
  Country: None (occurrence: None)
  Receive Date: 20120221
  Receipt Date: 20111130
  Transmission Date: 20120608
  Serious: No
  Sender: FDA-Public Use
  Company Number: 1000025864

PATIENT
  Age: 57 Year
  Sex: Female

DRUGS (10)
  1. GLUCOSAMINE (GLUCOSAMINE) ( GLUCOSAMINE) [Concomitant]
  2. CALCIUM (CALCIUM) (CALCIUM) [Concomitant]
  3. VITAMIN D(VITAMIN D) (VITAMIN D) [Concomitant]
  4. FISH OIL (FISH OIL) (FISH OIL) [Concomitant]
  5. VIIBRYD [Suspect]
     Indication: ANXIETY
     Dosage: 10 MG (10 MG,1 IN 1 D),ORAL  20 MG (20 MG, 1 IN 1 D),ORAL
     Route: 048
     Dates: start: 20111117, end: 20111123
  6. VIIBRYD [Suspect]
     Indication: DEPRESSION
     Dosage: 10 MG (10 MG,1 IN 1 D),ORAL  20 MG (20 MG, 1 IN 1 D),ORAL
     Route: 048
     Dates: start: 20111117, end: 20111123
  7. VIIBRYD [Suspect]
     Indication: ANXIETY
     Dosage: 10 MG (10 MG,1 IN 1 D),ORAL  20 MG (20 MG, 1 IN 1 D),ORAL
     Route: 048
     Dates: start: 20111124
  8. VIIBRYD [Suspect]
     Indication: DEPRESSION
     Dosage: 10 MG (10 MG,1 IN 1 D),ORAL  20 MG (20 MG, 1 IN 1 D),ORAL
     Route: 048
     Dates: start: 20111124
  9. VITAMIN C(ASCORBIC ACID) (ASCORBIC ACID) [Concomitant]
  10. SYNTHROID (LEVOTHYROXINE SODIUM) (LEVOTHYROXINE SODIUM) [Concomitant]

REACTIONS (2)
  - DIARRHOEA [None]
  - NAUSEA [None]
